FAERS Safety Report 4383856-0 (Version None)
Quarter: 2004Q2

REPORT INFORMATION
  Report Type: 
  Country: None (occurrence: None)
  Receive Date: 20040614
  Receipt Date: 20040311
  Transmission Date: 20050107
  Serious: Yes (Hospitalization, Other)
  Sender: FDA-Public Use
  Company Number: M03-341-099

PATIENT
  Age: 73 Year
  Sex: Female
  Weight: 103 kg

DRUGS (5)
  1. VELCADE [Suspect]
     Indication: MULTIPLE MYELOMA
     Dosage: 2.5 MG: INTRAVENOUS
     Route: 042
     Dates: start: 20030829, end: 20030905
  2. ATIVAN [Concomitant]
  3. FUROSEMIDE [Concomitant]
  4. K-DUR 10 [Concomitant]
  5. PROCHLORPERAZINE [Concomitant]

REACTIONS (8)
  - ARTHRALGIA [None]
  - BACK PAIN [None]
  - CELLULITIS [None]
  - HYPERGLYCAEMIA [None]
  - HYPERURICAEMIA [None]
  - NEUTROPENIA [None]
  - OEDEMA PERIPHERAL [None]
  - THROMBOCYTOPENIA [None]
